FAERS Safety Report 11879491 (Version 2)
Quarter: 2016Q1

REPORT INFORMATION
  Report Type: Spontaneous
  Country: CH (occurrence: CH)
  Receive Date: 20151230
  Receipt Date: 20160127
  Transmission Date: 20160526
  Serious: Yes (Hospitalization, Other)
  Sender: FDA-Public Use
  Company Number: CH-ABBVIE-15K-151-1490884-00

PATIENT
  Sex: Male

DRUGS (1)
  1. HUMIRA [Suspect]
     Active Substance: ADALIMUMAB
     Indication: PSORIASIS
     Route: 058
     Dates: start: 2013, end: 201508

REACTIONS (16)
  - Muscle strain [Unknown]
  - Renal failure [Recovered/Resolved]
  - Superinfection bacterial [Recovering/Resolving]
  - Cellulitis [Unknown]
  - Dermatitis contact [Recovered/Resolved]
  - Immunosuppression [Unknown]
  - Pain [Unknown]
  - Infected dermal cyst [Unknown]
  - Necrotising fasciitis [Recovering/Resolving]
  - Furuncle [Recovering/Resolving]
  - Systemic infection [Recovered/Resolved]
  - Anaemia [Recovered/Resolved]
  - Inflammation [Recovered/Resolved]
  - Acute kidney injury [Recovered/Resolved]
  - Abscess [Unknown]
  - Sepsis [Unknown]

NARRATIVE: CASE EVENT DATE: 2015
